FAERS Safety Report 7237779-X (Version None)
Quarter: 2011Q1

REPORT INFORMATION
  Report Type: 
  Country: None (occurrence: None)
  Receive Date: 20110121
  Receipt Date: 20110117
  Transmission Date: 20110831
  Serious: Yes (Death)
  Sender: FDA-Public Use
  Company Number: AU-ROCHE-742271

PATIENT
  Sex: Female

DRUGS (2)
  1. TAXOL [Suspect]
     Route: 065
  2. HERCEPTIN [Suspect]
     Route: 065

REACTIONS (2)
  - RENAL DISORDER [None]
  - MYOCARDIAL INFARCTION [None]
